FAERS Safety Report 24180183 (Version 1)
Quarter: 2024Q3

REPORT INFORMATION
  Report Type: Spontaneous
  Country: CO (occurrence: CO)
  Receive Date: 20240806
  Receipt Date: 20240806
  Transmission Date: 20241017
  Serious: Yes (Other)
  Sender: NOVARTIS
  Company Number: CO-SANDOZ-SDZ2024CO070266

PATIENT
  Sex: Female

DRUGS (4)
  1. LOSARTAN [Suspect]
     Active Substance: LOSARTAN\LOSARTAN POTASSIUM
     Indication: Hypertension
     Dosage: 50 MG, SHE HAS BEEN TAKING IT FOR TWO MONTHS.
     Route: 065
  2. AMLODIPINE [Suspect]
     Active Substance: AMLODIPINE BESYLATE
     Indication: Hypertension
     Dosage: 5 MG, SHE HAS BEEN TAKING IT FOR 12 YEARS
     Route: 065
     Dates: start: 2012
  3. COSENTYX [Suspect]
     Active Substance: SECUKINUMAB
     Indication: Ankylosing spondylitis
     Dosage: UNK; HAD TO POSTPONE IT FOR 5 DAYS
     Route: 065
  4. ACETAMINOPHEN\TRAMADOL HYDROCHLORIDE [Suspect]
     Active Substance: ACETAMINOPHEN\TRAMADOL HYDROCHLORIDE
     Indication: Product used for unknown indication
     Dosage: UNK, Q12H,SINCE 5 MONTHS AGO
     Route: 065

REACTIONS (6)
  - Osteoporotic fracture [Not Recovered/Not Resolved]
  - Vertebral wedging [Recovered/Resolved]
  - Influenza [Recovered/Resolved]
  - Oropharyngeal pain [Recovered/Resolved]
  - Nasopharyngitis [Recovered/Resolved]
  - Cough [Recovered/Resolved]

NARRATIVE: CASE EVENT DATE: 20160101
